FAERS Safety Report 26092307 (Version 1)
Quarter: 2025Q4

REPORT INFORMATION
  Report Type: Spontaneous
  Country: JP (occurrence: JP)
  Receive Date: 20251126
  Receipt Date: 20251126
  Transmission Date: 20260118
  Serious: Yes (Hospitalization, Other)
  Sender: MYLAN
  Company Number: JP-VIATRISJAPAN-2025M1086093AA

PATIENT
  Age: 17 Year
  Sex: Female
  Weight: 49.7 kg

DRUGS (24)
  1. EFFEXOR XR [Suspect]
     Active Substance: VENLAFAXINE HYDROCHLORIDE
     Indication: Depression
     Dosage: 75 MILLIGRAM, QD
     Dates: start: 20240801, end: 20240901
  2. EFFEXOR XR [Suspect]
     Active Substance: VENLAFAXINE HYDROCHLORIDE
     Indication: Anxiety disorder
     Dosage: 75 MILLIGRAM, QD
     Route: 048
     Dates: start: 20240801, end: 20240901
  3. EFFEXOR XR [Suspect]
     Active Substance: VENLAFAXINE HYDROCHLORIDE
     Dosage: 75 MILLIGRAM, QD
     Route: 048
     Dates: start: 20240801, end: 20240901
  4. EFFEXOR XR [Suspect]
     Active Substance: VENLAFAXINE HYDROCHLORIDE
     Dosage: 75 MILLIGRAM, QD
     Dates: start: 20240801, end: 20240901
  5. MIRTAZAPINE [Suspect]
     Active Substance: MIRTAZAPINE
     Indication: Depression
     Dosage: 7.5 MILLIGRAM, QD
     Dates: start: 202408, end: 20240901
  6. MIRTAZAPINE [Suspect]
     Active Substance: MIRTAZAPINE
     Dosage: 7.5 MILLIGRAM, QD
     Route: 048
     Dates: start: 202408, end: 20240901
  7. MIRTAZAPINE [Suspect]
     Active Substance: MIRTAZAPINE
     Dosage: 7.5 MILLIGRAM, QD
     Route: 048
     Dates: start: 202408, end: 20240901
  8. MIRTAZAPINE [Suspect]
     Active Substance: MIRTAZAPINE
     Dosage: 7.5 MILLIGRAM, QD
     Dates: start: 202408, end: 20240901
  9. LORAZEPAM [Concomitant]
     Active Substance: LORAZEPAM
     Indication: Depression
     Dosage: 0.5 MILLIGRAM, TID
     Dates: start: 202408, end: 20240902
  10. LORAZEPAM [Concomitant]
     Active Substance: LORAZEPAM
     Dosage: 0.5 MILLIGRAM, TID
     Dates: start: 202408, end: 20240902
  11. LORAZEPAM [Concomitant]
     Active Substance: LORAZEPAM
     Dosage: 0.5 MILLIGRAM, TID
     Route: 048
     Dates: start: 202408, end: 20240902
  12. LORAZEPAM [Concomitant]
     Active Substance: LORAZEPAM
     Dosage: 0.5 MILLIGRAM, TID
     Route: 048
     Dates: start: 202408, end: 20240902
  13. LORAZEPAM [Concomitant]
     Active Substance: LORAZEPAM
     Dosage: DECREASED DOSE
  14. LORAZEPAM [Concomitant]
     Active Substance: LORAZEPAM
     Dosage: DECREASED DOSE
  15. LORAZEPAM [Concomitant]
     Active Substance: LORAZEPAM
     Dosage: DECREASED DOSE
     Route: 048
  16. LORAZEPAM [Concomitant]
     Active Substance: LORAZEPAM
     Dosage: DECREASED DOSE
     Route: 048
  17. ZINC [Concomitant]
     Active Substance: ZINC
     Indication: Zinc deficiency
     Dosage: 25 MILLIGRAM, BID
     Dates: start: 202408
  18. ZINC [Concomitant]
     Active Substance: ZINC
     Dosage: 25 MILLIGRAM, BID
     Route: 048
     Dates: start: 202408
  19. ZINC [Concomitant]
     Active Substance: ZINC
     Dosage: 25 MILLIGRAM, BID
     Route: 048
     Dates: start: 202408
  20. ZINC [Concomitant]
     Active Substance: ZINC
     Dosage: 25 MILLIGRAM, BID
     Dates: start: 202408
  21. SODIUM FERROUS CITRATE [Concomitant]
     Active Substance: SODIUM FERROUS CITRATE
     Indication: Iron deficiency anaemia
     Dosage: 50 MILLIGRAM, BID
     Dates: start: 2024
  22. SODIUM FERROUS CITRATE [Concomitant]
     Active Substance: SODIUM FERROUS CITRATE
     Dosage: 50 MILLIGRAM, BID
     Route: 048
     Dates: start: 2024
  23. SODIUM FERROUS CITRATE [Concomitant]
     Active Substance: SODIUM FERROUS CITRATE
     Dosage: 50 MILLIGRAM, BID
     Route: 048
     Dates: start: 2024
  24. SODIUM FERROUS CITRATE [Concomitant]
     Active Substance: SODIUM FERROUS CITRATE
     Dosage: 50 MILLIGRAM, BID
     Dates: start: 2024

REACTIONS (4)
  - Altered state of consciousness [Recovered/Resolved]
  - Restlessness [Unknown]
  - Torsade de pointes [Recovered/Resolved]
  - Electrocardiogram QT prolonged [Recovering/Resolving]

NARRATIVE: CASE EVENT DATE: 20240901
